FAERS Safety Report 5363876-X (Version None)
Quarter: 2007Q2

REPORT INFORMATION
  Report Type: 
  Country: None (occurrence: None)
  Receive Date: 20070620
  Receipt Date: 20070615
  Transmission Date: 20071010
  Serious: Yes (Death)
  Sender: FDA-Public Use
  Company Number: FR-ASTRAZENECA-2007CG00922

PATIENT
  Age: 93 Year
  Sex: Female
  Weight: 55 kg

DRUGS (4)
  1. ATACAND [Suspect]
     Route: 048
  2. LASIX [Suspect]
     Route: 048
  3. HEXABRIX [Suspect]
     Route: 013
     Dates: start: 20070507, end: 20070507
  4. ASPIRIN [Suspect]
     Route: 048

REACTIONS (1)
  - RENAL FAILURE CHRONIC [None]
